FAERS Safety Report 5127265-5 (Version None)
Quarter: 2006Q4

REPORT INFORMATION
  Report Type: 
  Country: None (occurrence: None)
  Receive Date: 20061010
  Receipt Date: 20060928
  Transmission Date: 20070319
  Serious: Yes (Hospitalization)
  Sender: FDA-Public Use
  Company Number: ERP06000066

PATIENT
  Age: 71 Year
  Sex: Female
  Weight: 60 kg

DRUGS (2)
  1. DIDRONATE (ETIDRONATE DISODIUM) TABLET, 200MG [Suspect]
     Indication: OSTEOPOROSIS
     Dosage: 400 MG, DAILY
     Dates: start: 19970101, end: 20060201
  2. VIOXX [Concomitant]

REACTIONS (7)
  - ANAEMIA [None]
  - ANGINA PECTORIS [None]
  - BLOOD TEST ABNORMAL [None]
  - BREAST DISCOMFORT [None]
  - CHEST DISCOMFORT [None]
  - MYELODYSPLASTIC SYNDROME [None]
  - NEUTROPENIA [None]
